FAERS Safety Report 7449921-6 (Version None)
Quarter: 2011Q2

REPORT INFORMATION
  Report Type: 
  Country: None (occurrence: None)
  Receive Date: 20110502
  Receipt Date: 20110415
  Transmission Date: 20111010
  Serious: Yes (Hospitalization, Other)
  Sender: FDA-Public Use
  Company Number: US-BAYER-201037004NA

PATIENT
  Age: 48 Year
  Sex: Female
  Weight: 88 kg

DRUGS (11)
  1. PRILOSEC [Concomitant]
     Dosage: 40 MG, QD
     Route: 048
  2. SINGULAIR [Concomitant]
     Dosage: 10 MG, UNK
     Route: 048
     Dates: start: 20070531
  3. ADVAIR DISKUS 100/50 [Concomitant]
     Dosage: UNK
     Dates: start: 19870101
  4. YAZ [Suspect]
     Indication: PRODUCT USED FOR UNKNOWN INDICATION
     Dosage: UNK UNK, UNK
     Route: 048
     Dates: start: 20060901
  5. ULTRACET [Concomitant]
     Indication: PAIN
     Dosage: UNK
     Dates: start: 20070718
  6. ASPIRIN [Concomitant]
     Route: 048
  7. YASMIN [Suspect]
     Indication: PRODUCT USED FOR UNKNOWN INDICATION
     Route: 048
  8. NAPROXEN [Concomitant]
     Dosage: 500 MG, UNK
     Route: 048
     Dates: start: 20070621
  9. MELOXICAM [Concomitant]
     Dosage: 7.5 MG, UNK
     Dates: start: 20070627
  10. SYNTHROID [Concomitant]
     Dosage: 200 MCG/24HR, QD
     Route: 048
     Dates: start: 19870101
  11. PROTONIX [Concomitant]
     Indication: ABDOMINAL PAIN
     Dosage: UNK
     Dates: start: 20070713

REACTIONS (4)
  - CHOLECYSTITIS CHRONIC [None]
  - DEEP VEIN THROMBOSIS [None]
  - PULMONARY EMBOLISM [None]
  - CHOLELITHIASIS [None]
